FAERS Safety Report 14813424 (Version 2)
Quarter: 2018Q2

REPORT INFORMATION
  Report Type: Report from Study
  Country: GB (occurrence: GB)
  Receive Date: 20180426
  Receipt Date: 20180529
  Transmission Date: 20180711
  Serious: Yes (Hospitalization)
  Sender: FDA-Public Use
  Company Number: GB-BIOGEN-2018BI00559250

PATIENT
  Sex: Male

DRUGS (1)
  1. NUSINERSEN [Suspect]
     Active Substance: NUSINERSEN
     Indication: SPINAL MUSCULAR ATROPHY
     Route: 037
     Dates: start: 201712, end: 201712

REACTIONS (5)
  - Bilevel positive airway pressure [Unknown]
  - Pneumothorax [Unknown]
  - Infection [Unknown]
  - Muscle disorder [Unknown]
  - Respiratory disorder [Unknown]
